FAERS Safety Report 8070639-3 (Version None)
Quarter: 2012Q1

REPORT INFORMATION
  Report Type: 
  Country: None (occurrence: None)
  Receive Date: 20120125
  Receipt Date: 20120119
  Transmission Date: 20120608
  Serious: Yes (Hospitalization, Other)
  Sender: FDA-Public Use
  Company Number: PHEH2012US001386

PATIENT
  Sex: Male
  Weight: 34.8 kg

DRUGS (9)
  1. ASCORBIC ACID [Concomitant]
     Dosage: 100 MG, DAILY
     Route: 048
  2. ASCORBIC ACID [Concomitant]
     Dosage: 150 MG, BID
     Route: 048
  3. EXJADE [Suspect]
     Indication: IRON OVERLOAD
     Dosage: 1000 MG, DAILY
     Route: 048
  4. DESFERAL [Concomitant]
     Dosage: 100 MG/KG, DAILY
     Route: 042
  5. CALCIUM GLUCONATE [Concomitant]
     Dosage: 500 MG, DAILY
     Route: 048
  6. FOLIC ACID [Concomitant]
     Dosage: 1 MG, QD
     Route: 048
  7. EXJADE [Suspect]
     Indication: HAEMOCHROMATOSIS
     Dosage: 1250 MG, DAILY
     Route: 048
     Dates: start: 20110221
  8. VITAMIN E [Concomitant]
     Dosage: 18 MG, DAILY
     Route: 048
  9. DESFERAL [Concomitant]
     Dosage: 1.7 G, FOR 12 HRS
     Route: 058

REACTIONS (21)
  - CONJUNCTIVAL PALLOR [None]
  - LIVER PALPABLE SUBCOSTAL [None]
  - SPLEEN PALPABLE [None]
  - LIVER FUNCTION TEST ABNORMAL [None]
  - BLOOD BILIRUBIN INCREASED [None]
  - HAEMOGLOBIN DECREASED [None]
  - BILE DUCT CANCER [None]
  - POLYCYTHAEMIA [None]
  - RETICULOCYTE COUNT DECREASED [None]
  - BLOOD PRESSURE DECREASED [None]
  - PSEUDOMONAL SEPSIS [None]
  - HEPATITIS C [None]
  - UROBILINOGEN URINE INCREASED [None]
  - LYMPHOCYTIC INFILTRATION [None]
  - ASPARTATE AMINOTRANSFERASE INCREASED [None]
  - TRANSAMINASES INCREASED [None]
  - HAEMOSIDEROSIS [None]
  - BLOOD IRON INCREASED [None]
  - HEART RATE INCREASED [None]
  - ALANINE AMINOTRANSFERASE INCREASED [None]
  - HEPATIC FIBROSIS [None]
